FAERS Safety Report 21847674 (Version 1)
Quarter: 2023Q1

REPORT INFORMATION
  Report Type: Report from Study
  Country: US (occurrence: US)
  Receive Date: 20230111
  Receipt Date: 20230111
  Transmission Date: 20230418
  Serious: Yes (Hospitalization, Other)
  Sender: FDA-Public Use
  Company Number: US-JNJFOC-20230110643

PATIENT
  Sex: Female

DRUGS (1)
  1. RIVAROXABAN [Suspect]
     Active Substance: RIVAROXABAN
     Indication: Product used for unknown indication
     Route: 048

REACTIONS (9)
  - Hip arthroplasty [Unknown]
  - Tremor [Unknown]
  - Pyrexia [Unknown]
  - Vomiting [Unknown]
  - Arthropathy [Unknown]
  - Arthropathy [Unknown]
  - Urinary tract infection [Unknown]
  - Bronchitis [Not Recovered/Not Resolved]
  - Asthma [Unknown]
